FAERS Safety Report 14471899 (Version 2)
Quarter: 2018Q1

REPORT INFORMATION
  Report Type: Spontaneous
  Country: TR (occurrence: TR)
  Receive Date: 20180131
  Receipt Date: 20180220
  Transmission Date: 20180509
  Serious: Yes (Other)
  Sender: FDA-Public Use
  Company Number: TR-SA-2018SA018494

PATIENT
  Age: 58 Year
  Sex: Female
  Weight: 68 kg

DRUGS (4)
  1. ZALTRAP [Suspect]
     Active Substance: ZIV-AFLIBERCEPT
     Indication: COLON CANCER METASTATIC
     Route: 042
     Dates: start: 20180117, end: 20180117
  2. IRINOTECAN [Concomitant]
     Active Substance: IRINOTECAN
  3. ZALTRAP [Suspect]
     Active Substance: ZIV-AFLIBERCEPT
     Indication: COLON CANCER METASTATIC
     Route: 042
     Dates: start: 20180101, end: 20180101
  4. 5-FU [Concomitant]
     Active Substance: FLUOROURACIL

REACTIONS (2)
  - Hydrocephalus [Recovering/Resolving]
  - Osmotic demyelination syndrome [Unknown]

NARRATIVE: CASE EVENT DATE: 20180112
